FAERS Safety Report 13937393 (Version 1)
Quarter: 2017Q3

REPORT INFORMATION
  Report Type: Spontaneous
  Country: DE (occurrence: DE)
  Receive Date: 20170905
  Receipt Date: 20170905
  Transmission Date: 20171127
  Serious: Yes (Other)
  Sender: FDA-Public Use
  Company Number: PHHY2017DE128541

PATIENT
  Age: 64 Year
  Sex: Male

DRUGS (1)
  1. EXTAVIA [Suspect]
     Active Substance: INTERFERON BETA-1B
     Indication: MULTIPLE SCLEROSIS
     Dosage: UNK, QD
     Route: 065
     Dates: start: 201105

REACTIONS (2)
  - Inappropriate schedule of drug administration [Unknown]
  - Colon cancer [Unknown]

NARRATIVE: CASE EVENT DATE: 20170829
